FAERS Safety Report 10362701 (Version 1)
Quarter: 2014Q3

REPORT INFORMATION
  Report Type: Report from Study
  Country: ES (occurrence: ES)
  Receive Date: 20140805
  Receipt Date: 20140805
  Transmission Date: 20150326
  Serious: Yes (Hospitalization)
  Sender: FDA-Public Use
  Company Number: ES-BAYER-2014-114630

PATIENT
  Age: 56 Year
  Sex: Male

DRUGS (1)
  1. REGORAFENIB [Suspect]
     Active Substance: REGORAFENIB
     Indication: GASTROINTESTINAL STROMAL TUMOUR
     Dosage: DAILY DOSE 160 MG
     Route: 048
     Dates: start: 20121123, end: 20130718

REACTIONS (1)
  - Extraocular muscle disorder [None]

NARRATIVE: CASE EVENT DATE: 20130312
